FAERS Safety Report 7727602-9 (Version None)
Quarter: 2011Q3

REPORT INFORMATION
  Report Type: 
  Country: None (occurrence: None)
  Receive Date: 20110902
  Receipt Date: 20110826
  Transmission Date: 20111222
  Serious: Yes (Hospitalization)
  Sender: FDA-Public Use
  Company Number: US-B.I. PHARMACEUTICALS,INC./RIDGEFIELD-2011-BP-13316BP

PATIENT
  Age: 90 Year
  Sex: Female

DRUGS (8)
  1. PRADAXA [Suspect]
     Indication: ATRIAL FIBRILLATION
     Dosage: 300 MG
     Route: 048
     Dates: start: 20110429, end: 20110510
  2. ISOPTO TEARS [Concomitant]
     Route: 031
  3. MUCINEX [Concomitant]
  4. SYNTHROID [Concomitant]
  5. ALBUTEROL SULFATE AUTOHALER [Concomitant]
  6. AMIODARONE HCL [Concomitant]
  7. MEGACE [Concomitant]
  8. METOPROLOL [Concomitant]

REACTIONS (3)
  - UROSEPSIS [None]
  - HAEMORRHAGE [None]
  - INTERNATIONAL NORMALISED RATIO ABNORMAL [None]
